FAERS Safety Report 4289983-0 (Version None)
Quarter: 2004Q1

REPORT INFORMATION
  Report Type: 
  Country: None (occurrence: None)
  Receive Date: 20040210
  Receipt Date: 20040205
  Transmission Date: 20041129
  Serious: Yes (Other)
  Sender: FDA-Public Use
  Company Number: WAES 0402USA00500

PATIENT

DRUGS (1)
  1. TRUSOPT [Suspect]
     Route: 047

REACTIONS (1)
  - CORNEAL DECOMPENSATION [None]
